FAERS Safety Report 8537568-X (Version None)
Quarter: 2012Q3

REPORT INFORMATION
  Report Type: 
  Country: None (occurrence: None)
  Receive Date: 20120725
  Receipt Date: 20120718
  Transmission Date: 20120928
  Serious: Yes (Hospitalization)
  Sender: FDA-Public Use
  Company Number: JP-VERTEX PHARMACEUTICALS INC.-AE-2012-010251

PATIENT
  Age: 65 Year
  Sex: Female

DRUGS (6)
  1. TELAVIC (TELAPREVIR) [Suspect]
     Indication: HEPATITIS C
     Route: 048
     Dates: start: 20120517, end: 20120605
  2. PEG-INTRON [Concomitant]
     Indication: HEPATITIS C
     Route: 058
     Dates: start: 20120517
  3. REBETOL [Concomitant]
     Route: 048
     Dates: start: 20120607, end: 20120613
  4. REBETOL [Concomitant]
     Route: 048
     Dates: start: 20120614
  5. REBETOL [Concomitant]
     Indication: HEPATITIS C
     Route: 048
     Dates: start: 20120517, end: 20120606
  6. TELAVIC (TELAPREVIR) [Suspect]
     Route: 048
     Dates: start: 20120607, end: 20120703

REACTIONS (2)
  - RASH GENERALISED [None]
  - DRUG RASH WITH EOSINOPHILIA AND SYSTEMIC SYMPTOMS [None]
